FAERS Safety Report 10215923 (Version 1)
Quarter: 2014Q2

REPORT INFORMATION
  Report Type: Spontaneous
  Country: US (occurrence: US)
  Receive Date: 20140604
  Receipt Date: 20140604
  Transmission Date: 20141212
  Serious: Yes (Hospitalization, Other)
  Sender: FDA-Public Use
  Company Number: US-JNJFOC-20140513861

PATIENT
  Age: 64 Year
  Sex: Female

DRUGS (1)
  1. ACETAMINOPHEN [Suspect]
     Indication: PRODUCT USED FOR UNKNOWN INDICATION
     Route: 065

REACTIONS (5)
  - Metabolic acidosis [Not Recovered/Not Resolved]
  - Acute respiratory failure [Recovering/Resolving]
  - Sepsis [Recovering/Resolving]
  - Pyelonephritis [Recovering/Resolving]
  - Renal failure acute [Recovering/Resolving]
